FAERS Safety Report 11691519 (Version 2)
Quarter: 2015Q4

REPORT INFORMATION
  Report Type: Report from Study
  Country: US (occurrence: US)
  Receive Date: 20151102
  Receipt Date: 20151104
  Transmission Date: 20160304
  Serious: Yes (Death, Hospitalization, Other)
  Sender: FDA-Public Use
  Company Number: PHHO2015US015934

PATIENT
  Age: 25 Year
  Sex: Female
  Weight: 65.5 kg

DRUGS (4)
  1. GSK1120212 [Suspect]
     Active Substance: TRAMETINIB
     Indication: OVARIAN CANCER
     Dosage: 2 MG, 6 HOURLY
     Route: 048
     Dates: start: 20150422, end: 20150823
  2. TAXOL [Concomitant]
     Active Substance: PACLITAXEL
     Indication: OVARIAN CANCER
     Dosage: UNK
     Route: 065
     Dates: start: 201503
  3. LORAZEPAM. [Concomitant]
     Active Substance: LORAZEPAM
     Indication: OVARIAN CANCER
     Dosage: UNK
     Route: 065
     Dates: start: 201503
  4. CISPLATIN. [Concomitant]
     Active Substance: CISPLATIN
     Indication: OVARIAN CANCER
     Dosage: UNK
     Route: 065
     Dates: start: 201503

REACTIONS (2)
  - Death [Fatal]
  - Ulcerative keratitis [Not Recovered/Not Resolved]

NARRATIVE: CASE EVENT DATE: 20150830
